FAERS Safety Report 7739011-7 (Version None)
Quarter: 2011Q3

REPORT INFORMATION
  Report Type: 
  Country: None (occurrence: None)
  Receive Date: 20110909
  Receipt Date: 20110830
  Transmission Date: 20111222
  Serious: No
  Sender: FDA-Public Use
  Company Number: US-BIOGENIDEC-2011BI033608

PATIENT
  Age: 44 Year
  Sex: Female

DRUGS (1)
  1. TYSABRI [Suspect]
     Indication: MULTIPLE SCLEROSIS
     Route: 042
     Dates: start: 20110331

REACTIONS (6)
  - ABNORMAL SENSATION IN EYE [None]
  - DIZZINESS [None]
  - NAUSEA [None]
  - HYPERSENSITIVITY [None]
  - DISTURBANCE IN ATTENTION [None]
  - FATIGUE [None]
